FAERS Safety Report 4699345-X (Version None)
Quarter: 2005Q2

REPORT INFORMATION
  Report Type: 
  Country: None (occurrence: None)
  Receive Date: 20050622
  Receipt Date: 20050606
  Transmission Date: 20051028
  Serious: Yes (Other)
  Sender: FDA-Public Use
  Company Number: EM2005-0281

PATIENT
  Age: 21 Month
  Sex: Male

DRUGS (5)
  1. TOBI [Suspect]
     Dosage: 300 MG, BID, INHALATION
     Route: 055
     Dates: start: 20050526, end: 20050526
  2. PREDNISONE [Concomitant]
  3. VENTOLIN [Concomitant]
  4. CIPROFLOXACIN [Concomitant]
  5. PANCREASE (PANCRELIPASE) [Concomitant]

REACTIONS (3)
  - DYSPNOEA [None]
  - LETHARGY [None]
  - WHEEZING [None]
